FAERS Safety Report 5724061-2 (Version None)
Quarter: 2008Q2

REPORT INFORMATION
  Report Type: 
  Country: None (occurrence: None)
  Receive Date: 20080430
  Receipt Date: 20080403
  Transmission Date: 20081010
  Serious: No
  Sender: FDA-Public Use
  Company Number: US-BOEHRINGER INGELHEIM GMBH, GERMANY-2008-BP-05303BP

PATIENT
  Sex: Male

DRUGS (7)
  1. CATAPRES [Suspect]
     Indication: HYPERTENSION
     Route: 048
     Dates: start: 20070601, end: 20071201
  2. AMIODARONE HCL [Concomitant]
     Indication: ATRIAL FIBRILLATION
  3. TOPROL-XL [Concomitant]
     Indication: BICUSPID AORTIC VALVE
  4. WARFARIN SODIUM [Concomitant]
  5. LOVAZA CAPS [Concomitant]
  6. KLOR-CON [Concomitant]
  7. THYROID TAB [Concomitant]
     Indication: THYROID DISORDER

REACTIONS (1)
  - DRUG EFFECT DECREASED [None]
